FAERS Safety Report 16895065 (Version 1)
Quarter: 2019Q4

REPORT INFORMATION
  Report Type: Spontaneous
  Country: US (occurrence: US)
  Receive Date: 20191008
  Receipt Date: 20191008
  Transmission Date: 20200122
  Serious: No
  Sender: FDA-Public Use
  Company Number: US-INDIVIOR US-INDV-120837-2019

PATIENT
  Age: 72 Year
  Sex: Male
  Weight: 78.9 kg

DRUGS (6)
  1. ATORVASTATIN [Concomitant]
     Active Substance: ATORVASTATIN
     Indication: BLOOD CHOLESTEROL INCREASED
     Dosage: 20MG, QD
     Route: 065
  2. NARCAN [Suspect]
     Active Substance: NALOXONE HYDROCHLORIDE
     Indication: OVERDOSE
     Dosage: 4MG, QD (0.1ML)
     Route: 045
     Dates: start: 20190610, end: 20190610
  3. ASPIRIN                            /00002701/ [Concomitant]
     Active Substance: ASPIRIN
     Indication: HYPERTENSION
     Dosage: 81 MG, QD
     Route: 065
  4. SUBOXONE [Suspect]
     Active Substance: BUPRENORPHINE HYDROCHLORIDE\NALOXONE HYDROCHLORIDE
     Indication: PAIN
     Dosage: 12.3MG (1.5 DOSAGE UNITS), BID
     Route: 060
     Dates: end: 201906
  5. SUBOXONE [Suspect]
     Active Substance: BUPRENORPHINE HYDROCHLORIDE\NALOXONE HYDROCHLORIDE
     Dosage: 12.3MG, THREE TO FOUR TIMES
     Route: 060
     Dates: start: 20190610
  6. CHLORTHALIDONE. [Concomitant]
     Active Substance: CHLORTHALIDONE
     Indication: HYPERTENSION
     Dosage: 25MG, QD
     Route: 065

REACTIONS (7)
  - Inappropriate schedule of product administration [Unknown]
  - Off label use [Unknown]
  - Dizziness [Unknown]
  - Drug withdrawal syndrome [Recovered/Resolved]
  - Wrong technique in product usage process [Unknown]
  - Intentional product use issue [Recovered/Resolved]
  - Seasonal allergy [Unknown]

NARRATIVE: CASE EVENT DATE: 20190610
